FAERS Safety Report 14708143 (Version 3)
Quarter: 2018Q3

REPORT INFORMATION
  Report Type: Report from Study
  Country: US (occurrence: US)
  Receive Date: 20180403
  Receipt Date: 20180926
  Transmission Date: 20181010
  Serious: Yes (Other)
  Sender: FDA-Public Use
  Company Number: PHEH2018US012467

PATIENT
  Age: 51 Year
  Sex: Male
  Weight: 94 kg

DRUGS (2)
  1. ENTRESTO [Suspect]
     Active Substance: SACUBITRIL\VALSARTAN
     Indication: PRODUCT USED FOR UNKNOWN INDICATION
     Dosage: 1 DF (49 MG SACUBITRIL AND 51 MG VALSARTAN), BID
     Route: 048
  2. ENTRESTO [Interacting]
     Active Substance: SACUBITRIL\VALSARTAN
     Dosage: 1 DF (24 MG SACUBITRIL AND 26 MG VALSARTAN), BID
     Route: 048

REACTIONS (4)
  - Rash [Recovered/Resolved]
  - Hypotension [Recovered/Resolved with Sequelae]
  - Ejection fraction decreased [Unknown]
  - Myocardial infarction [Unknown]

NARRATIVE: CASE EVENT DATE: 201708
